FAERS Safety Report 6641560-X (Version None)
Quarter: 2010Q1

REPORT INFORMATION
  Report Type: 
  Country: None (occurrence: None)
  Receive Date: 20100318
  Receipt Date: 20100308
  Transmission Date: 20100710
  Serious: Yes (Other)
  Sender: FDA-Public Use
  Company Number: AR-GENENTECH-299277

PATIENT
  Sex: Female
  Weight: 55.011 kg

DRUGS (3)
  1. OMALIZUMAB [Suspect]
     Indication: ASTHMA
     Dosage: 300 MG, 1/MONTH
     Route: 058
     Dates: start: 20090617, end: 20090828
  2. FLUTICASONE PROPIONATE [Suspect]
     Indication: ASTHMA
     Dosage: 50 G, UNK
     Route: 055
     Dates: start: 20070316, end: 20091023
  3. SALMETEROL [Suspect]
     Indication: ASTHMA
     Dosage: 50 G, UNK
     Route: 055
     Dates: start: 20070316, end: 20091023

REACTIONS (2)
  - ABORTION SPONTANEOUS [None]
  - DRUG EXPOSURE DURING PREGNANCY [None]
